FAERS Safety Report 6447889-2 (Version None)
Quarter: 2009Q4

REPORT INFORMATION
  Report Type: 
  Country: None (occurrence: None)
  Receive Date: 20091116
  Receipt Date: 20091109
  Transmission Date: 20100525
  Serious: Yes (Life-Threatening, Hospitalization)
  Sender: FDA-Public Use
  Company Number: SPV1-2009-02221

PATIENT
  Age: 82 Year
  Sex: Female
  Weight: 60 kg

DRUGS (7)
  1. XAGRID         (ANAGRELIDE HYDROCHLORIDE) CAPSULES [Suspect]
     Indication: ESSENTIAL THROMBOCYTHAEMIA
     Dosage: 0.5 MG, 2X/DAY:BID, ORAL, 0.75 MG, 2X/DAY:BID, ORAL
     Route: 048
     Dates: start: 20090921, end: 20091011
  2. XAGRID         (ANAGRELIDE HYDROCHLORIDE) CAPSULES [Suspect]
     Indication: ESSENTIAL THROMBOCYTHAEMIA
     Dosage: 0.5 MG, 2X/DAY:BID, ORAL, 0.75 MG, 2X/DAY:BID, ORAL
     Route: 048
     Dates: start: 20091106, end: 20091108
  3. ATENOLOL [Concomitant]
  4. BENDROFLUAZIDE (BENDROFLUMETHIAZIDE) [Concomitant]
  5. ASPIRIN [Concomitant]
  6. FLOXACILLIN SODIUM [Concomitant]
  7. CO-AMOXICLAVE   (AMOXICILLIN TRIHYDRATE, CLAVULANATE POTASSIUM) [Concomitant]

REACTIONS (5)
  - HYPOTENSION [None]
  - LUNG INFILTRATION [None]
  - RENAL FAILURE [None]
  - RIGHT VENTRICULAR FAILURE [None]
  - SEPSIS [None]
